FAERS Safety Report 15053996 (Version 2)
Quarter: 2018Q3

REPORT INFORMATION
  Report Type: Report from Study
  Country: US (occurrence: US)
  Receive Date: 20180622
  Receipt Date: 20180702
  Transmission Date: 20181010
  Serious: Yes (Other)
  Sender: FDA-Public Use
  Company Number: US-TEVA-2018-US-910720

PATIENT
  Age: 33 Year
  Sex: Female

DRUGS (1)
  1. COPAXONE [Suspect]
     Active Substance: GLATIRAMER ACETATE
     Indication: MULTIPLE SCLEROSIS
     Route: 058
     Dates: start: 20180604, end: 20180613

REACTIONS (8)
  - Erythema [Unknown]
  - Urticaria [Recovered/Resolved]
  - Swelling face [Recovered/Resolved]
  - Immediate post-injection reaction [Unknown]
  - Palpitations [Unknown]
  - Dyspnoea [Unknown]
  - Flushing [Unknown]
  - Ear swelling [Recovered/Resolved]

NARRATIVE: CASE EVENT DATE: 20180613
